FAERS Safety Report 23627543 (Version 6)
Quarter: 2024Q2

REPORT INFORMATION
  Report Type: Spontaneous
  Country: US (occurrence: US)
  Receive Date: 20240313
  Receipt Date: 20240524
  Transmission Date: 20240715
  Serious: No
  Sender: FDA-Public Use
  Company Number: US-HALEON-USCH2024013775

PATIENT

DRUGS (1)
  1. ALLI [Suspect]
     Active Substance: ORLISTAT
     Indication: Weight decreased
     Dosage: UNK ;EXPDATE:20250731EXPDATE:20250731EXPDATE:20250731

REACTIONS (2)
  - Drug ineffective [Unknown]
  - Product complaint [Unknown]
